FAERS Safety Report 6577527-X (Version None)
Quarter: 2010Q1

REPORT INFORMATION
  Report Type: 
  Country: None (occurrence: None)
  Receive Date: 20100211
  Receipt Date: 20100203
  Transmission Date: 20100710
  Serious: Yes (Hospitalization, Other)
  Sender: FDA-Public Use
  Company Number: US-ASTRAZENECA-2009UW08443

PATIENT
  Age: 56 Year
  Sex: Male
  Weight: 101.6 kg

DRUGS (59)
  1. SEROQUEL [Suspect]
     Indication: BIPOLAR DISORDER
     Dosage: 50-200MG
     Route: 048
     Dates: start: 20021101, end: 20081101
  2. SEROQUEL [Suspect]
     Indication: OBSESSIVE-COMPULSIVE DISORDER
     Dosage: 50-200MG
     Route: 048
     Dates: start: 20021101, end: 20081101
  3. SEROQUEL [Suspect]
     Indication: GENERALISED ANXIETY DISORDER
     Dosage: 50-200MG
     Route: 048
     Dates: start: 20021101, end: 20081101
  4. SEROQUEL [Suspect]
     Indication: ATTENTION DEFICIT/HYPERACTIVITY DISORDER
     Dosage: 50-200MG
     Route: 048
     Dates: start: 20021101, end: 20081101
  5. SEROQUEL [Suspect]
     Dosage: 25 TO 200 MG
     Route: 048
     Dates: start: 20021106
  6. SEROQUEL [Suspect]
     Dosage: 25 TO 200 MG
     Route: 048
     Dates: start: 20021106
  7. SEROQUEL [Suspect]
     Dosage: 25 TO 200 MG
     Route: 048
     Dates: start: 20021106
  8. SEROQUEL [Suspect]
     Dosage: 25 TO 200 MG
     Route: 048
     Dates: start: 20021106
  9. SEROQUEL [Suspect]
     Route: 048
     Dates: start: 20030304
  10. SEROQUEL [Suspect]
     Route: 048
     Dates: start: 20030304
  11. SEROQUEL [Suspect]
     Route: 048
     Dates: start: 20030304
  12. SEROQUEL [Suspect]
     Route: 048
     Dates: start: 20030304
  13. SEROQUEL [Suspect]
     Dosage: 200 TO 300 MG
     Route: 048
     Dates: start: 20070612
  14. SEROQUEL [Suspect]
     Dosage: 200 TO 300 MG
     Route: 048
     Dates: start: 20070612
  15. SEROQUEL [Suspect]
     Dosage: 200 TO 300 MG
     Route: 048
     Dates: start: 20070612
  16. SEROQUEL [Suspect]
     Dosage: 200 TO 300 MG
     Route: 048
     Dates: start: 20070612
  17. ABILIFY [Concomitant]
     Dosage: 10 TO 15 MG
     Route: 048
     Dates: start: 20030501, end: 20080101
  18. GEODON [Concomitant]
     Dosage: 10-80 MG
     Dates: start: 20051001
  19. GEODON [Concomitant]
     Dosage: 20 TO 80 MG
     Dates: start: 20051001, end: 20070101
  20. GEODON [Concomitant]
     Dosage: 20 TO 80 MG
     Dates: start: 20090101
  21. LITHOBID [Concomitant]
     Dates: start: 20061201, end: 20070101
  22. NORTRIPTYLINE HCL [Concomitant]
     Dosage: 25 TO 110 MG
     Dates: start: 20040801, end: 20060501
  23. PROVIGIL [Concomitant]
     Dosage: 100 TO 200 MG
     Dates: start: 20040501, end: 20050901
  24. BUSPIRONE HCL [Concomitant]
     Dosage: 5 TO 30 MG
     Dates: start: 20040401, end: 20050701
  25. ZONEGRAN [Concomitant]
     Dosage: 100 TO 300 MG
     Dates: start: 20040601, end: 20040701
  26. TRAZODONE HCL [Concomitant]
     Dates: start: 20080301, end: 20081001
  27. LEXAPRO [Concomitant]
     Dosage: 10 TO 40 MG
     Dates: start: 20021101, end: 20071201
  28. LEXAPRO [Concomitant]
     Dates: start: 20030304
  29. CYMBALTA [Concomitant]
     Dosage: 20 TO 60 MG
     Dates: start: 20041001, end: 20090701
  30. LORAZEPAM [Concomitant]
     Dates: start: 20040101, end: 20080301
  31. LORAZEPAM [Concomitant]
     Dates: start: 20030304
  32. VISTARIL [Concomitant]
     Dates: start: 20070901, end: 20071101
  33. WELLBUTRIN XL [Concomitant]
     Dates: start: 20060801, end: 20070501
  34. TOPAMAX [Concomitant]
     Dates: start: 20070401, end: 20070701
  35. TOPAMAX [Concomitant]
     Dates: start: 20070515
  36. SERZONE [Concomitant]
     Dosage: 150 TO 450 MG
     Dates: start: 20020101
  37. SERZONE [Concomitant]
     Dates: start: 20020819
  38. SERZONE [Concomitant]
     Dates: start: 20020830
  39. ATIVAN [Concomitant]
     Dates: start: 20030201, end: 20030801
  40. CONCERTA [Concomitant]
     Dates: start: 20040101, end: 20040301
  41. CONCERTA [Concomitant]
     Dates: start: 20080601, end: 20081201
  42. MAPROTILINE [Concomitant]
     Dates: start: 20040301, end: 20040401
  43. BISOPROLOL FUMARATE AND HYDROCHLOROTHIAZIDE [Concomitant]
     Dosage: 5/6.25
     Dates: start: 20041101
  44. BISOPROLOL FUMARATE AND HYDROCHLOROTHIAZIDE [Concomitant]
     Dosage: 10-6.25 MG
     Dates: start: 20070423
  45. AZITHROMYCIN [Concomitant]
     Dates: start: 20061001
  46. LITHIUM CARBONATE ER [Concomitant]
     Dates: start: 20061201
  47. CLONAZEPAM [Concomitant]
     Dates: start: 20090201
  48. DEPAKOTE [Concomitant]
     Dosage: 1000MG-1250MG DAILY
     Route: 048
     Dates: start: 20030623
  49. PROTONIX [Concomitant]
     Dates: start: 20070319
  50. SIMVASTATIN [Concomitant]
     Dates: start: 20070423
  51. CEPHALEXIN [Concomitant]
     Dates: start: 20070508
  52. CHLORHEXIDINE GLUCONATE [Concomitant]
     Dosage: 0.12% RINSE
     Dates: start: 20070508
  53. PROZAC [Concomitant]
  54. STATTERA [Concomitant]
     Dates: start: 20030201, end: 20030501
  55. AMBIEN CR [Concomitant]
     Dates: start: 20090101
  56. PAXIL [Concomitant]
     Route: 048
     Dates: start: 20010509
  57. EFFEXOR XR [Concomitant]
     Route: 048
     Dates: start: 20011009
  58. EFFEXOR XR [Concomitant]
     Route: 048
     Dates: start: 20011102
  59. EFFEXOR XR [Concomitant]
     Route: 048
     Dates: start: 20020227

REACTIONS (7)
  - DIABETES MELLITUS [None]
  - HERNIA [None]
  - HYPERGLYCAEMIA [None]
  - INGUINAL HERNIA [None]
  - NEUROPATHY PERIPHERAL [None]
  - SUICIDAL IDEATION [None]
  - TYPE 2 DIABETES MELLITUS [None]
